FAERS Safety Report 23933465 (Version 1)
Quarter: 2024Q2

REPORT INFORMATION
  Report Type: Spontaneous
  Country: BR (occurrence: BR)
  Receive Date: 20240603
  Receipt Date: 20240603
  Transmission Date: 20240716
  Serious: Yes (Hospitalization)
  Sender: FDA-Public Use
  Company Number: BR-ELI_LILLY_AND_COMPANY-BR202403014472

PATIENT
  Age: 67 Year
  Sex: Female
  Weight: 68 kg

DRUGS (1)
  1. OLUMIANT [Suspect]
     Active Substance: BARICITINIB
     Indication: Degenerative bone disease
     Dosage: 4 MG, DAILY
     Route: 065

REACTIONS (4)
  - Spinal cord infection [Recovering/Resolving]
  - Off label use [Unknown]
  - Pain [Unknown]
  - Dysstasia [Unknown]
